FAERS Safety Report 20183090 (Version 1)
Quarter: 2021Q4

REPORT INFORMATION
  Report Type: Other
  Country: GB (occurrence: None)
  Receive Date: 20211214
  Receipt Date: 20211214
  Transmission Date: 20220303
  Serious: Yes (Hospitalization, Disabling)
  Sender: FDA-Public Use
  Company Number: GB-ROCHE-2920687

PATIENT
  Age: 51 Year
  Sex: Female
  Weight: 129 kg

DRUGS (17)
  1. PRALSETINIB [Suspect]
     Active Substance: PRALSETINIB
     Indication: Non-small cell lung cancer
     Route: 048
     Dates: start: 20201230
  2. OSIMERTINIB MESYLATE [Concomitant]
     Active Substance: OSIMERTINIB MESYLATE
     Indication: Non-small cell lung cancer
     Route: 048
     Dates: start: 20210626
  3. AMLODIPINE [Concomitant]
     Active Substance: AMLODIPINE BESYLATE
     Indication: Hypertension
     Route: 048
  4. AMLODIPINE [Concomitant]
     Active Substance: AMLODIPINE BESYLATE
     Route: 048
     Dates: start: 20200424
  5. APIXABAN [Concomitant]
     Active Substance: APIXABAN
     Indication: Pulmonary embolism
     Route: 048
  6. APIXABAN [Concomitant]
     Active Substance: APIXABAN
     Route: 048
     Dates: start: 20201109
  7. LEVOTHYROXINE [Concomitant]
     Active Substance: LEVOTHYROXINE
     Route: 048
  8. METOCLOPRAMIDE [Concomitant]
     Active Substance: METOCLOPRAMIDE
     Route: 048
  9. OMEPRAZOLE [Concomitant]
     Active Substance: OMEPRAZOLE
     Route: 048
  10. PREDNISOLONE [Concomitant]
     Active Substance: PREDNISOLONE
     Route: 048
  11. PREDNISOLONE [Concomitant]
     Active Substance: PREDNISOLONE
  12. PREDNISOLONE [Concomitant]
     Active Substance: PREDNISOLONE
  13. QUININE SULFATE [Concomitant]
     Active Substance: QUININE SULFATE
  14. SALMETEROL [Concomitant]
     Active Substance: SALMETEROL
  15. TIOTROPIUM [Concomitant]
     Active Substance: TIOTROPIUM
     Route: 048
  16. OSIMERTINIB [Concomitant]
     Active Substance: OSIMERTINIB
     Indication: Lung neoplasm malignant
     Route: 048
     Dates: start: 20200601
  17. LANSOPRAZOLE [Concomitant]
     Active Substance: LANSOPRAZOLE
     Route: 048
     Dates: start: 20200528

REACTIONS (16)
  - Diplopia [Recovering/Resolving]
  - Dizziness [Recovering/Resolving]
  - Balance disorder [Recovering/Resolving]
  - IVth nerve paralysis [Recovering/Resolving]
  - Decreased appetite [Recovering/Resolving]
  - Fatigue [Recovering/Resolving]
  - Asthenia [Recovering/Resolving]
  - Nausea [Recovering/Resolving]
  - Muscular weakness [Recovering/Resolving]
  - Balance disorder [Recovering/Resolving]
  - Vomiting [Recovering/Resolving]
  - Diarrhoea [Recovering/Resolving]
  - Balance disorder [Not Recovered/Not Resolved]
  - Muscular weakness [Not Recovered/Not Resolved]
  - Cytokine increased [Not Recovered/Not Resolved]
  - Mastication disorder [Not Recovered/Not Resolved]

NARRATIVE: CASE EVENT DATE: 20210611
